FAERS Safety Report 7063252-8 (Version None)
Quarter: 2010Q4

REPORT INFORMATION
  Report Type: 
  Country: None (occurrence: None)
  Receive Date: 20101026
  Receipt Date: 20100611
  Transmission Date: 20110411
  Serious: No
  Sender: FDA-Public Use
  Company Number: US-PFIZER INC-2010073893

PATIENT
  Sex: Female
  Weight: 64 kg

DRUGS (5)
  1. LIPITOR [Suspect]
     Indication: BLOOD CHOLESTEROL INCREASED
     Dosage: 80 MG, UNK
     Route: 048
  2. METFORMIN [Concomitant]
     Indication: DIABETES MELLITUS
     Dosage: 500 UG, 2X/DAY
     Route: 048
  3. GLUCOTROL XL [Concomitant]
     Indication: DIABETES MELLITUS
     Dosage: 5 MG, 2X/DAY
     Route: 048
  4. NOVOLIN 70/30 [Concomitant]
     Indication: DIABETES MELLITUS
     Dosage: 15UG IIN THE MORNING, 20MCG IN THE EVENING
  5. DIOVAN HCT [Concomitant]
     Indication: DIABETES MELLITUS
     Dosage: 160 MG,DAILY
     Route: 048

REACTIONS (2)
  - MYALGIA [None]
  - PARAESTHESIA [None]
